FAERS Safety Report 6084961-3 (Version None)
Quarter: 2009Q1

REPORT INFORMATION
  Report Type: 
  Country: None (occurrence: None)
  Receive Date: 20090220
  Receipt Date: 20090211
  Transmission Date: 20090719
  Serious: Yes (Other)
  Sender: FDA-Public Use
  Company Number: GB-JNJFOC-20090203614

PATIENT
  Age: 26 Year
  Sex: Female
  Weight: 54 kg

DRUGS (2)
  1. ORTHO EVRA [Suspect]
     Indication: CONTRACEPTION
     Dosage: NORELGESTROMIN 6 MG/ETHINYL ESTRADIOL 0.6 MG
     Route: 062
  2. DOXYCYCLINE [Interacting]
     Indication: ACNE
     Route: 048

REACTIONS (2)
  - DRUG INTERACTION [None]
  - METRORRHAGIA [None]
